FAERS Safety Report 12454610 (Version 2)
Quarter: 2016Q3

REPORT INFORMATION
  Report Type: Spontaneous
  Country: JP (occurrence: JP)
  Receive Date: 20160610
  Receipt Date: 20160701
  Transmission Date: 20161109
  Serious: Yes (Hospitalization)
  Sender: FDA-Public Use
  Company Number: JP-TAKEDA-2016TJP006398

PATIENT
  Age: 60 Year
  Sex: Male

DRUGS (5)
  1. FLUITRAN [Concomitant]
     Active Substance: TRICHLORMETHIAZIDE
     Dosage: UNK
     Route: 048
  2. AVAPRO [Concomitant]
     Active Substance: IRBESARTAN
     Dosage: UNK
     Route: 048
  3. NESINA [Suspect]
     Active Substance: ALOGLIPTIN BENZOATE
     Indication: TYPE 2 DIABETES MELLITUS
     Dosage: 25 MG, UNK
     Route: 048
     Dates: start: 20160312, end: 20160318
  4. AMLODIN [Concomitant]
     Active Substance: AMLODIPINE BESYLATE
     Dosage: UNK
     Route: 048
  5. FEBURIC [Concomitant]
     Active Substance: FEBUXOSTAT
     Dosage: UNK
     Route: 048

REACTIONS (3)
  - Nephrotic syndrome [Unknown]
  - Colitis ischaemic [Recovering/Resolving]
  - Gastrointestinal disorder [Unknown]

NARRATIVE: CASE EVENT DATE: 20160318
